FAERS Safety Report 16785602 (Version 1)
Quarter: 2019Q4

REPORT INFORMATION
  Report Type: Spontaneous
  Country: US (occurrence: US)
  Receive Date: 20190908
  Receipt Date: 20190908
  Transmission Date: 20200122
  Serious: No
  Sender: FDA-Public Use
  Company Number: None

PATIENT
  Age: 65 Year
  Sex: Male
  Weight: 85.5 kg

DRUGS (14)
  1. IODINE. [Concomitant]
     Active Substance: IODINE
  2. VITAMIN K [Concomitant]
     Active Substance: PHYTONADIONE
  3. BORON [Concomitant]
     Active Substance: BORON
  4. TURMERIC [Concomitant]
     Active Substance: HERBALS\TURMERIC
  5. VITAMIN A [Concomitant]
     Active Substance: VITAMIN A
  6. VITAMIN B12 [Concomitant]
     Active Substance: CYANOCOBALAMIN
  7. FISH OIL [Concomitant]
     Active Substance: FISH OIL
  8. NP THYROID [Suspect]
     Active Substance: LEVOTHYROXINE\LIOTHYRONINE
     Indication: HYPOTHYROIDISM
     Dosage: ?          QUANTITY:2 TABLET(S);?
     Route: 048
     Dates: start: 20190905, end: 20190905
  9. VITAMIN C [Concomitant]
     Active Substance: ASCORBIC ACID
  10. PREGNENOLONE [Concomitant]
     Active Substance: PREGNENOLONE
  11. MAGNESIUM MALATE. [Concomitant]
     Active Substance: MAGNESIUM MALATE
  12. VITAMIN D3 [Concomitant]
     Active Substance: CHOLECALCIFEROL
  13. DHEA [Concomitant]
     Active Substance: PRASTERONE
  14. CALCIUM CITRATE [Concomitant]
     Active Substance: CALCIUM CITRATE

REACTIONS (4)
  - Influenza like illness [None]
  - Product odour abnormal [None]
  - Blood pressure increased [None]
  - Product physical issue [None]

NARRATIVE: CASE EVENT DATE: 20190905
